FAERS Safety Report 14107814 (Version 4)
Quarter: 2018Q1

REPORT INFORMATION
  Report Type: Spontaneous
  Country: JP (occurrence: JP)
  Receive Date: 20171019
  Receipt Date: 20180209
  Transmission Date: 20180508
  Serious: Yes (Hospitalization, Other)
  Sender: FDA-Public Use
  Company Number: JP-BAYER-2017-198828

PATIENT
  Age: 50 Year
  Sex: Female
  Weight: 63 kg

DRUGS (2)
  1. MIRENA [Suspect]
     Active Substance: LEVONORGESTREL
     Indication: TUBO-OVARIAN ABSCESS
     Dosage: 20 MCG/24HR, CONT
     Route: 015
     Dates: start: 20170324, end: 20170327
  2. MIRENA [Suspect]
     Active Substance: LEVONORGESTREL
     Indication: TUBO-OVARIAN ABSCESS
     Dosage: UNK
     Route: 015
     Dates: start: 20170324, end: 20170327

REACTIONS (7)
  - Salpingo-oophoritis [None]
  - Chills [None]
  - Pyrexia [Recovering/Resolving]
  - Tubo-ovarian abscess [Recovering/Resolving]
  - Abdominal distension [None]
  - Malaise [None]
  - Abdominal symptom [Recovering/Resolving]

NARRATIVE: CASE EVENT DATE: 20170327
